FAERS Safety Report 17959091 (Version 3)
Quarter: 2022Q4

REPORT INFORMATION
  Report Type: Spontaneous
  Country: US (occurrence: US)
  Receive Date: 20200629
  Receipt Date: 20221113
  Transmission Date: 20230112
  Serious: No
  Sender: FDA-Public Use
  Company Number: US-EMERGENT BIOSOLUTIONS,-20000344SP

PATIENT
  Age: 39 Year
  Sex: Male

DRUGS (13)
  1. RAXIBACUMAB [Suspect]
     Active Substance: RAXIBACUMAB
     Indication: Bacillus infection
     Dosage: UNK
     Route: 042
     Dates: start: 20200503, end: 20200503
  2. RAXIBACUMAB [Suspect]
     Active Substance: RAXIBACUMAB
     Dosage: UNK
     Route: 042
     Dates: start: 20200509, end: 20200509
  3. VANCOMYCIN [Concomitant]
     Active Substance: VANCOMYCIN
     Indication: Bacillus infection
     Dosage: UNK
     Route: 065
  4. PIPERACILLIN SODIUM\TAZOBACTAM SODIUM [Concomitant]
     Active Substance: PIPERACILLIN SODIUM\TAZOBACTAM SODIUM
     Indication: Bacillus infection
     Dosage: UNK
     Route: 065
  5. GENTAMICIN [Concomitant]
     Active Substance: GENTAMICIN
     Indication: Bacillus infection
     Route: 065
  6. MEROPENEM [Concomitant]
     Active Substance: MEROPENEM
     Indication: Bacillus infection
     Route: 065
  7. METHYLPREDNISOLONE [Concomitant]
     Active Substance: METHYLPREDNISOLONE
     Indication: Bacillus infection
     Route: 065
  8. LEVOFLOXACIN [Concomitant]
     Active Substance: LEVOFLOXACIN
     Indication: Bacillus infection
  9. AZITHROMYCIN [Concomitant]
     Active Substance: AZITHROMYCIN
     Indication: Pyelonephritis acute
     Route: 065
  10. AZITHROMYCIN [Concomitant]
     Active Substance: AZITHROMYCIN
     Indication: Dehydration
  11. CEFTRIAXONE [Concomitant]
     Active Substance: CEFTRIAXONE
     Indication: Pyelonephritis acute
     Route: 065
  12. CEFTRIAXONE [Concomitant]
     Active Substance: CEFTRIAXONE
     Indication: Dehydration
  13. LINEZOLID [Concomitant]
     Active Substance: LINEZOLID
     Indication: Bacillus infection
     Route: 065

REACTIONS (1)
  - Off label use [Recovered/Resolved]

NARRATIVE: CASE EVENT DATE: 20200503
